FAERS Safety Report 8502381-6 (Version None)
Quarter: 2012Q3

REPORT INFORMATION
  Report Type: 
  Country: None (occurrence: None)
  Receive Date: 20120702
  Receipt Date: 20120619
  Transmission Date: 20120928
  Serious: Yes (Life-Threatening)
  Sender: FDA-Public Use
  Company Number: 2012HGS-003128

PATIENT
  Age: 52 Year
  Sex: Female
  Weight: 42.6381 kg

DRUGS (16)
  1. TESSALON PERLE (BENZONATATE)(BENZONATATE)` [Concomitant]
  2. DICLOFENAC SODIUM [Concomitant]
  3. PROCARDIA XL (NIFEDIPINE)(NIFEDIPINE) [Concomitant]
  4. CALCIUM CARBONATE (CALCIUM CARBONATE)(CALCIUM CARBONATE) [Concomitant]
  5. ALENDRONATE SODIUM [Concomitant]
  6. PERCOCET (TYLOX /00446701/)(PARACETAMOL, OXYCODONE HYDROCHLORIDE, OXYC [Concomitant]
  7. COMBIVENT INHALER (COMBIVENT)(IPRATROPIUM BROMIDE, SALBUTAMOL SULFATE) [Concomitant]
  8. ALBUTEROL (SALBUTAMOL) (SALBUTAMOL [Concomitant]
  9. LYMPHOSTAT-B [Suspect]
     Indication: SYSTEMIC LUPUS ERYTHEMATOSUS
     Dosage: 10 MG/KG, 1 IN 28 D, INTRAVENOUS  
DRIP
     Route: 041
     Dates: start: 20050825, end: 20110823
  10. DICYCLOMINE (DICYCLOVERINE)(DICYCLOVERINE) [Concomitant]
  11. ZOLOFT [Concomitant]
  12. FERROUS SULFATE (FERROUS SULFATE)(FERROUS SULFATE) [Concomitant]
  13. SPIRIVA (TIOTROPIUM BROMIDE)(TIOTROPIUM BROMIDE) [Concomitant]
  14. NICOTINE PATCH (NICOTINE)(NICOTINE) [Concomitant]
  15. HYDROXYCHLOROQUINE (HYDROXYCHLOROQUINE)(HYDROXYCHLOF UINE) [Concomitant]
  16. PREDNISONE [Concomitant]

REACTIONS (18)
  - MULTIPLE FRACTURES [None]
  - LUNG CONSOLIDATION [None]
  - PLATELET COUNT INCREASED [None]
  - BLOOD CALCIUM INCREASED [None]
  - HAEMORRHAGE [None]
  - HAEMOGLOBIN DECREASED [None]
  - COMPRESSION FRACTURE [None]
  - ASCITES [None]
  - PLATELET COUNT DECREASED [None]
  - OSTEOPENIA [None]
  - HAEMATOCRIT DECREASED [None]
  - CARDIOMEGALY [None]
  - BLOOD ALBUMIN DECREASED [None]
  - SPINAL FRACTURE [None]
  - PLEURAL EFFUSION [None]
  - ATELECTASIS [None]
  - DEEP VEIN THROMBOSIS [None]
  - LYMPHOCYTE COUNT DECREASED [None]
